FAERS Safety Report 6559167-1 (Version None)
Quarter: 2010Q1

REPORT INFORMATION
  Report Type: 
  Country: None (occurrence: None)
  Receive Date: 20100129
  Receipt Date: 20100119
  Transmission Date: 20100710
  Serious: Yes (Hospitalization)
  Sender: FDA-Public Use
  Company Number: DK-MERCK-0906DNK00010

PATIENT
  Age: 60 Year
  Sex: Female
  Weight: 60 kg

DRUGS (9)
  1. SIMVASTATIN [Suspect]
     Indication: HYPERCHOLESTEROLAEMIA
     Route: 048
     Dates: start: 20050101, end: 20080801
  2. IOMERON-150 [Suspect]
     Indication: SCAN WITH CONTRAST
     Route: 042
     Dates: start: 20090422, end: 20090508
  3. FURIX [Concomitant]
     Indication: FLUID RETENTION
     Route: 048
     Dates: start: 20030101
  4. ETALPHA [Concomitant]
     Indication: VITAMIN D DEFICIENCY
     Route: 048
     Dates: start: 20080808
  5. FERRO DURETTER [Concomitant]
     Route: 048
     Dates: start: 20070427
  6. RAMIPRIL [Concomitant]
     Indication: HYPERTENSION
     Route: 048
     Dates: start: 20070727
  7. METHENAMINE SULFOSALICYLATE [Suspect]
     Indication: HYPERCHOLESTEROLAEMIA
     Route: 048
     Dates: start: 20080901, end: 20081201
  8. SIMVASTATIN [Suspect]
     Route: 048
     Dates: start: 20090101, end: 20090201
  9. SIMVASTATIN [Suspect]
     Route: 048
     Dates: start: 20090301, end: 20090508

REACTIONS (2)
  - DRUG INTERACTION [None]
  - RHABDOMYOLYSIS [None]
